FAERS Safety Report 23574387 (Version 1)
Quarter: 2024Q1

REPORT INFORMATION
  Report Type: Other
  Country: US (occurrence: None)
  Receive Date: 20240228
  Receipt Date: 20240228
  Transmission Date: 20240410
  Serious: No
  Sender: FDA-Public Use
  Company Number: US-ROCHE-2685687

PATIENT
  Sex: Female

DRUGS (12)
  1. OCREVUS [Suspect]
     Active Substance: OCRELIZUMAB
     Indication: Multiple sclerosis
     Dosage: NEXT DOSE:08/APR/2020, RECEIVED OCRELIZUMAB OF AN UNKNOWN DOSAGE FORM. MOST RECENT INFUSION: 24/JUL/
     Route: 065
     Dates: start: 20200325
  2. VALTREX [Concomitant]
     Active Substance: VALACYCLOVIR HYDROCHLORIDE
     Dosage: 30 DF
     Route: 048
     Dates: start: 20191021
  3. RITALIN [Concomitant]
     Active Substance: METHYLPHENIDATE HYDROCHLORIDE
     Dosage: 1.5 TABLETS BY MOUTH TWO TIMES DAILY AFTER MEALS
     Route: 048
     Dates: start: 20200121
  4. SUBOXONE [Concomitant]
     Active Substance: BUPRENORPHINE HYDROCHLORIDE\NALOXONE HYDROCHLORIDE
     Dosage: 2 FILM EVERY MORNING
     Route: 060
     Dates: start: 20200103
  5. NALOXONE [Concomitant]
     Active Substance: NALOXONE
     Dosage: SINGLE SPRAY INTRANASALLY INTO ONE NOSTRIL
     Dates: start: 20191224
  6. GLUCOPHAGE [Concomitant]
     Active Substance: METFORMIN HYDROCHLORIDE
     Dosage: TAKE 2 TABLET TWO TIMES DAILY WITH MEELS
     Route: 048
     Dates: start: 20191125
  7. CLEOCIN [Concomitant]
     Active Substance: CLINDAMYCIN PHOSPHATE
     Route: 048
     Dates: start: 20191121
  8. PROTONIX [Concomitant]
     Active Substance: PANTOPRAZOLE SODIUM
     Route: 048
  9. ATARAX [Concomitant]
     Active Substance: HYDROXYZINE HYDROCHLORIDE
     Dosage: EVERY NIGHT AT BEDTIME
     Route: 048
  10. VITAMIN D3 [Concomitant]
     Active Substance: CHOLECALCIFEROL
     Dosage: 1000 UNITS
     Route: 048
  11. MIRABEGRON [Concomitant]
     Active Substance: MIRABEGRON
     Dosage: BY MOUTH
     Route: 048
     Dates: start: 20181024
  12. PROBIOTIC COMPLEX [Concomitant]
     Route: 048

REACTIONS (1)
  - COVID-19 [Recovered/Resolved]

NARRATIVE: CASE EVENT DATE: 20200701
